APPROVED DRUG PRODUCT: TRASICOR
Active Ingredient: OXPRENOLOL HYDROCHLORIDE
Strength: 80MG
Dosage Form/Route: CAPSULE;ORAL
Application: N018166 | Product #003
Applicant: NOVARTIS PHARMACEUTICALS CORP
Approved: Dec 28, 1983 | RLD: No | RS: No | Type: DISCN